FAERS Safety Report 19125094 (Version 5)
Quarter: 2023Q1

REPORT INFORMATION
  Report Type: Spontaneous
  Country: US (occurrence: US)
  Receive Date: 20210412
  Receipt Date: 20230118
  Transmission Date: 20230417
  Serious: Yes (Hospitalization, Other)
  Sender: FDA-Public Use
  Company Number: US-PFIZER INC-2020401173

PATIENT
  Age: 86 Year
  Sex: Female
  Weight: 86 kg

DRUGS (1)
  1. PREMARIN [Suspect]
     Active Substance: ESTROGENS, CONJUGATED
     Indication: Menopause
     Dosage: 0.3 MG, 1X/DAY
     Route: 048

REACTIONS (3)
  - Cerebrovascular accident [Unknown]
  - Dysarthria [Not Recovered/Not Resolved]
  - Product prescribing error [Unknown]
